FAERS Safety Report 18125368 (Version 1)
Quarter: 2020Q3

REPORT INFORMATION
  Report Type: Spontaneous
  Country: US (occurrence: US)
  Receive Date: 20200807
  Receipt Date: 20200807
  Transmission Date: 20201103
  Serious: Yes (Other)
  Sender: FDA-Public Use
  Company Number: US-ALLERGAN-2029418US

PATIENT

DRUGS (3)
  1. PREDNISOLONE UNK [Suspect]
     Active Substance: PREDNISOLONE
     Indication: CATARACT OPERATION
     Dosage: 1 GTT, BID
     Route: 047
  2. BROMFENAC [Concomitant]
     Active Substance: BROMFENAC SODIUM
     Indication: CATARACT OPERATION
     Dosage: 1 GTT, QD STARTING 3 DAYS BEFORE SURGERY AND CONTINUED FOR 4 WEEKS
  3. GATIFLOXACIN SESQUIHYDRATE [Suspect]
     Active Substance: GATIFLOXACIN
     Indication: CATARACT OPERATION
     Dosage: 1 GTT, QID
     Route: 047

REACTIONS (1)
  - Cystoid macular oedema [Unknown]
